FAERS Safety Report 12699519 (Version 3)
Quarter: 2017Q1

REPORT INFORMATION
  Report Type: Report from Study
  Country: None (occurrence: US)
  Receive Date: 20160830
  Receipt Date: 20170329
  Transmission Date: 20170428
  Serious: Yes (Hospitalization)
  Sender: FDA-Public Use
  Company Number: US-ABBVIE-16P-163-1709116-00

PATIENT
  Age: 83 Year
  Sex: Male

DRUGS (20)
  1. PRAVASTATIN. [Concomitant]
     Active Substance: PRAVASTATIN
     Indication: BLOOD CHOLESTEROL INCREASED
     Dates: start: 2009
  2. HYCODAN SYRUP [Concomitant]
     Indication: COUGH
     Dates: start: 20160720, end: 20160802
  3. HYDROCHLOROTHIAZIDE. [Concomitant]
     Active Substance: HYDROCHLOROTHIAZIDE
     Indication: HYPERTENSION
     Dates: start: 2014
  4. FENOFIBRATE. [Concomitant]
     Active Substance: FENOFIBRATE
     Indication: HYPERLIPIDAEMIA
     Dates: start: 2009
  5. INDOCIN [Concomitant]
     Active Substance: INDOMETHACIN
     Indication: BLOOD URIC ACID INCREASED
     Dates: start: 1986
  6. VENETOCLAX [Suspect]
     Active Substance: VENETOCLAX
     Indication: NON-HODGKIN^S LYMPHOMA
     Dosage: DATE OF MOST RECENT DOSE (800MG) PRIOR TO AE ONSET 16 AUG 2016
     Route: 048
     Dates: start: 20160204
  7. VALTREX [Concomitant]
     Active Substance: VALACYCLOVIR HYDROCHLORIDE
     Indication: HERPES OPHTHALMIC
     Dates: start: 2013
  8. SODIUM CHLORIDE. [Concomitant]
     Active Substance: SODIUM CHLORIDE
     Indication: BLOOD UREA INCREASED
     Dates: start: 20160720, end: 20160720
  9. ASPIRIN. [Concomitant]
     Active Substance: ASPIRIN
     Indication: ATRIAL FIBRILLATION
     Dates: start: 1986
  10. BENDAMUSTINE [Suspect]
     Active Substance: BENDAMUSTINE
     Indication: NON-HODGKIN^S LYMPHOMA
     Dosage: DAY 1 AND 2 OF 28 DAY CYCLE
     Route: 042
     Dates: start: 20160204
  11. METOPROLOL. [Concomitant]
     Active Substance: METOPROLOL
     Indication: ATRIAL FIBRILLATION
     Dates: start: 2011
  12. PREDNISOLONE. [Concomitant]
     Active Substance: PREDNISOLONE
     Indication: EYE INFECTION
     Dosage: 170 GH
     Dates: start: 2013
  13. ASPIRIN. [Concomitant]
     Active Substance: ASPIRIN
     Indication: TRANSIENT ISCHAEMIC ATTACK
  14. SODIUM CHLORIDE. [Concomitant]
     Active Substance: SODIUM CHLORIDE
     Indication: BLOOD CREATININE INCREASED
  15. LEVAQUIN [Concomitant]
     Active Substance: LEVOFLOXACIN
     Indication: LUNG INFECTION
     Dates: start: 20160720, end: 20160729
  16. LUMIGAN [Concomitant]
     Active Substance: BIMATOPROST
     Indication: GLAUCOMA
     Dosage: 8.01 % GH DAILY
     Dates: start: 2005
  17. COSOPT [Concomitant]
     Active Substance: DORZOLAMIDE HYDROCHLORIDE\TIMOLOL MALEATE
     Indication: GLAUCOMA
     Dosage: FORM: SOLUTION; 2% GH
     Dates: start: 2010
  18. RITUXIMAB [Suspect]
     Active Substance: RITUXIMAB
     Indication: NON-HODGKIN^S LYMPHOMA
     Dosage: DAY 1 OF EACH 28 DAY CYCLE
     Route: 042
     Dates: start: 20160204
  19. AMLODIPINE [Concomitant]
     Active Substance: AMLODIPINE BESYLATE
     Indication: HYPERTENSION
     Dates: start: 2013
  20. ALLOPURINOL. [Concomitant]
     Active Substance: ALLOPURINOL
     Indication: BLOOD URIC ACID INCREASED
     Dates: start: 20160707

REACTIONS (1)
  - Embolism [Recovered/Resolved]

NARRATIVE: CASE EVENT DATE: 20160817
